FAERS Safety Report 11771178 (Version 1)
Quarter: 2015Q4

REPORT INFORMATION
  Report Type: Spontaneous
  Country: US (occurrence: US)
  Receive Date: 20151124
  Receipt Date: 20151124
  Transmission Date: 20160304
  Serious: No
  Sender: FDA-Public Use
  Company Number: US-PAR PHARMACEUTICAL, INC-2013SE72603

PATIENT

DRUGS (9)
  1. SYMBICORT [Suspect]
     Active Substance: BUDESONIDE\FORMOTEROL FUMARATE DIHYDRATE
     Dosage: 160 4.5 MCG, 2 PUFFS DAILY
     Route: 055
     Dates: start: 201309
  2. BLOOD PRESSURE MEDICATIONS [Concomitant]
     Active Substance: UNSPECIFIED INGREDIENT
     Indication: BLOOD PRESSURE MEASUREMENT
     Dosage: UNK, UNKNOWN
     Route: 065
  3. ACCOLATE [Suspect]
     Active Substance: ZAFIRLUKAST
     Indication: MULTIPLE ALLERGIES
     Dosage: 20 MG, BID
     Route: 048
  4. ACCOLATE [Suspect]
     Active Substance: ZAFIRLUKAST
     Dosage: 20 MG, DAILY
     Route: 048
     Dates: start: 201309, end: 2013
  5. SYMBICORT [Suspect]
     Active Substance: BUDESONIDE\FORMOTEROL FUMARATE DIHYDRATE
     Indication: ASTHMA
     Dosage: 160 4.5 MCG, 2 PUFFS BID
     Route: 055
     Dates: start: 2010
  6. SYMBICORT [Suspect]
     Active Substance: BUDESONIDE\FORMOTEROL FUMARATE DIHYDRATE
     Dosage: 160 4.5 MCG, 2 PUFFS BID
     Route: 055
  7. THYROID PREPARATIONS [Concomitant]
     Active Substance: UNSPECIFIED INGREDIENT
     Indication: THYROID DISORDER
     Dosage: UNK, UNKNOWN
     Route: 065
  8. SINGULAIR [Concomitant]
     Active Substance: MONTELUKAST SODIUM
     Indication: ASTHMA
     Dosage: UNK, UNKNOWN
     Route: 065
  9. ACCOLATE [Suspect]
     Active Substance: ZAFIRLUKAST
     Dosage: 20 MG, BID
     Route: 048
     Dates: start: 2013

REACTIONS (13)
  - Presyncope [Recovering/Resolving]
  - Wheezing [Recovering/Resolving]
  - Body height decreased [Unknown]
  - Intentional product misuse [Unknown]
  - Circumstance or information capable of leading to medication error [None]
  - Malaise [Unknown]
  - Viral infection [Unknown]
  - Scoliosis [Unknown]
  - Anxiety [Unknown]
  - Upper-airway cough syndrome [Unknown]
  - Panic disorder [Unknown]
  - Dyspnoea [Recovering/Resolving]
  - Muscle spasms [Unknown]

NARRATIVE: CASE EVENT DATE: 201309
